FAERS Safety Report 8920830 (Version 2)
Quarter: 2013Q1

REPORT INFORMATION
  Report Type: Report from Study
  Country: UG (occurrence: NZ)
  Receive Date: 20121121
  Receipt Date: 20130121
  Transmission Date: 20140127
  Serious: Yes (Hospitalization)
  Sender: FDA-Public Use
  Company Number: UG-VERTEX PHARMACEUTICAL INC.-000000000000000989

PATIENT
  Age: 59 Year
  Sex: Male
  Weight: 73 kg

DRUGS (8)
  1. VX-950 (TELAPREVIR) [Suspect]
     Indication: HEPATITIS C
     Dosage: DOSAGE FORM: TABLET
     Route: 048
     Dates: start: 20120510, end: 20120613
  2. RIBAVIRIN [Suspect]
     Indication: HEPATITIS C
     Dosage: 1000 MG, QD
     Route: 048
     Dates: start: 20120510, end: 20120612
  3. PEGINTERFERON ALFA [Suspect]
     Indication: HEPATITIS C
     Dosage: 180 ?G, QW
     Dates: start: 20120510, end: 20120614
  4. METFORMIN [Concomitant]
     Indication: DIABETES MELLITUS
     Dosage: 1200 MG, BID
     Route: 048
  5. GLUCOSAMINE [Concomitant]
     Indication: DIABETES MELLITUS
     Dosage: 120 MG, BID
     Route: 048
  6. PROTAPHANE [Concomitant]
     Indication: DIABETES MELLITUS
     Dosage: 4 DF, BID
     Route: 058
  7. MULTIVITAMINS [Concomitant]
     Indication: PROPHYLAXIS
     Dosage: DOSAGE FORM: TABLET
     Route: 048
  8. NOVORAPID [Concomitant]
     Indication: DIABETES MELLITUS
     Route: 058

REACTIONS (2)
  - Abscess limb [Recovered/Resolved]
  - Anaemia [Unknown]
